FAERS Safety Report 23308032 (Version 1)
Quarter: 2023Q4

REPORT INFORMATION
  Report Type: Spontaneous
  Country: CN (occurrence: CN)
  Receive Date: 20231218
  Receipt Date: 20231218
  Transmission Date: 20240109
  Serious: Yes (Hospitalization, Other)
  Sender: FDA-Public Use
  Company Number: CN-MLMSERVICE-20231205-4703963-1

PATIENT
  Age: 59 Year
  Sex: Male
  Weight: 58.4 kg

DRUGS (6)
  1. CIPROFLOXACIN [Suspect]
     Active Substance: CIPROFLOXACIN
     Indication: Methylobacterium infection
     Dosage: 0.4 G, BID
     Route: 042
     Dates: start: 20220621, end: 20220622
  2. CIPROFLOXACIN [Suspect]
     Active Substance: CIPROFLOXACIN
     Indication: Peritonitis
     Dosage: 0.2 G, BID
     Route: 042
     Dates: start: 20220623
  3. AMIKACIN [Concomitant]
     Active Substance: AMIKACIN
     Indication: Methylobacterium infection
     Dosage: 0.4 G, QD
     Route: 042
     Dates: start: 20220621
  4. AMIKACIN [Concomitant]
     Active Substance: AMIKACIN
     Indication: Peritonitis
  5. MEROPENEM [Concomitant]
     Active Substance: MEROPENEM
     Indication: Anti-infective therapy
     Dosage: 1 G, BID
     Route: 042
     Dates: start: 20220616
  6. PREDNISONE [Concomitant]
     Active Substance: PREDNISONE
     Indication: Immunosuppressant drug therapy
     Dosage: 50 MG, QD
     Route: 048
     Dates: start: 20220616

REACTIONS (2)
  - Delirium [Recovered/Resolved]
  - Mania [Recovered/Resolved]

NARRATIVE: CASE EVENT DATE: 20220623
